FAERS Safety Report 13142516 (Version 1)
Quarter: 2017Q1

REPORT INFORMATION
  Report Type: Spontaneous
  Country: US (occurrence: US)
  Receive Date: 20170124
  Receipt Date: 20170124
  Transmission Date: 20170428
  Serious: No
  Sender: FDA-Public Use
  Company Number: US-JNJFOC-20161209085

PATIENT
  Sex: Female
  Weight: 45.36 kg

DRUGS (2)
  1. FENTANYL TRANSDERMAL SYSTEM [Suspect]
     Active Substance: FENTANYL
     Indication: PAIN
     Route: 062
     Dates: start: 2016, end: 201611
  2. FENTANYL TRANSDERMAL SYSTEM [Suspect]
     Active Substance: FENTANYL
     Indication: PAIN
     Route: 062
     Dates: start: 20161205

REACTIONS (6)
  - Eye disorder [Not Recovered/Not Resolved]
  - Eye pain [Not Recovered/Not Resolved]
  - Pruritus generalised [Not Recovered/Not Resolved]
  - Hypoacusis [Unknown]
  - Hypersensitivity [Not Recovered/Not Resolved]
  - Rhinorrhoea [Not Recovered/Not Resolved]

NARRATIVE: CASE EVENT DATE: 2016
